FAERS Safety Report 7152707-3 (Version None)
Quarter: 2010Q4

REPORT INFORMATION
  Report Type: 
  Country: None (occurrence: None)
  Receive Date: 20101213
  Receipt Date: 20101208
  Transmission Date: 20110411
  Serious: Yes (Hospitalization)
  Sender: FDA-Public Use
  Company Number: US-BRISTOL-MYERS SQUIBB COMPANY-15433469

PATIENT
  Age: 58 Year
  Sex: Male

DRUGS (3)
  1. ABILIFY [Suspect]
     Indication: BIPOLAR DISORDER
     Dates: start: 20100801
  2. AVONEX [Interacting]
     Indication: MULTIPLE SCLEROSIS
     Dosage: AVONEX LIQUID:IM:27JUL10 TO AUG10
     Route: 030
     Dates: start: 20100701, end: 20100801
  3. GABAPENTIN [Interacting]
     Indication: BIPOLAR DISORDER

REACTIONS (2)
  - DRUG INTERACTION [None]
  - MANIA [None]
